FAERS Safety Report 4697690-5 (Version None)
Quarter: 2005Q2

REPORT INFORMATION
  Report Type: 
  Country: None (occurrence: None)
  Receive Date: 20050622
  Receipt Date: 20050608
  Transmission Date: 20051028
  Serious: Yes (Other)
  Sender: FDA-Public Use
  Company Number: SUSI-2005-00036

PATIENT
  Age: 13 Year
  Sex: Male
  Weight: 49.9 kg

DRUGS (2)
  1. ADDERALL XR 10 [Suspect]
     Dosage: 15 MG,  1X/DAY;QD, ORAL
     Route: 048
     Dates: start: 20050101, end: 20050101
  2. CONCERTA [Concomitant]

REACTIONS (4)
  - ABASIA [None]
  - CONDITION AGGRAVATED [None]
  - MUSCLE SPASTICITY [None]
  - PAIN [None]
